FAERS Safety Report 7054357-6 (Version None)
Quarter: 2010Q4

REPORT INFORMATION
  Report Type: 
  Country: None (occurrence: None)
  Receive Date: 20101020
  Receipt Date: 20100830
  Transmission Date: 20110411
  Serious: No
  Sender: FDA-Public Use
  Company Number: US-BAYER-201020772BCC

PATIENT
  Sex: Female

DRUGS (1)
  1. MIDOL EXTENDED RELIEF CAPLETS [Suspect]
     Indication: PRODUCT USED FOR UNKNOWN INDICATION
     Route: 048

REACTIONS (1)
  - HYPERSENSITIVITY [None]
